FAERS Safety Report 25417204 (Version 1)
Quarter: 2025Q2

REPORT INFORMATION
  Report Type: Spontaneous
  Country: US (occurrence: US)
  Receive Date: 20250610
  Receipt Date: 20250610
  Transmission Date: 20250716
  Serious: No
  Sender: ELI LILLY AND COMPANY
  Company Number: US-ELI_LILLY_AND_COMPANY-US202506002630

PATIENT
  Age: 61 Year

DRUGS (1)
  1. FORTEO [Suspect]
     Active Substance: TERIPARATIDE
     Indication: Product used for unknown indication
     Dosage: 20 UG, DAILY
     Route: 058

REACTIONS (6)
  - Immune system disorder [Unknown]
  - Osteoporosis [Unknown]
  - Oral lichen planus [Unknown]
  - Anaemia [Unknown]
  - Bipolar disorder [Unknown]
  - Attention deficit hyperactivity disorder [Unknown]
